FAERS Safety Report 9788058 (Version 1)
Quarter: 2013Q4

REPORT INFORMATION
  Report Type: Spontaneous
  Country: US (occurrence: None)
  Receive Date: 20131227
  Receipt Date: 20131227
  Transmission Date: 20140711
  Serious: Yes (Hospitalization)
  Sender: FDA-Public Use
  Company Number: None

PATIENT
  Age: 66 Year
  Sex: Female
  Weight: 44 kg

DRUGS (12)
  1. COUMADIN [Suspect]
     Indication: DEEP VEIN THROMBOSIS
     Route: 048
  2. NAPROXEN [Suspect]
     Indication: PAIN
     Dosage: CHRONIC?BID PRN PAIN?PO
     Route: 048
  3. LIDODERM [Concomitant]
  4. CALTRATE [Concomitant]
  5. ZOFRAN [Concomitant]
  6. LACTULOSE [Concomitant]
  7. NORCO [Concomitant]
  8. TYLENOL [Concomitant]
  9. VIT C [Concomitant]
  10. SENOKOT [Concomitant]
  11. THERAGRAN [Concomitant]
  12. PREDNISONE [Concomitant]

REACTIONS (5)
  - Haematochezia [None]
  - Lower gastrointestinal haemorrhage [None]
  - Faecaloma [None]
  - Refusal of treatment by patient [None]
  - Large intestinal ulcer [None]
